FAERS Safety Report 4772279-8 (Version None)
Quarter: 2005Q3

REPORT INFORMATION
  Report Type: 
  Country: None (occurrence: None)
  Receive Date: 20050919
  Receipt Date: 20050526
  Transmission Date: 20060218
  Serious: Yes (Other)
  Sender: FDA-Public Use
  Company Number: US-BRISTOL-MYERS SQUIBB COMPANY-12985784

PATIENT
  Age: 78 Year
  Sex: Female
  Weight: 63 kg

DRUGS (1)
  1. DEFINITY [Suspect]
     Indication: CHEST PAIN
     Route: 040
     Dates: start: 20050428

REACTIONS (1)
  - HYPOTENSION [None]
